FAERS Safety Report 4801222-8 (Version None)
Quarter: 2005Q4

REPORT INFORMATION
  Report Type: 
  Country: None (occurrence: None)
  Receive Date: 20051011
  Receipt Date: 20051003
  Transmission Date: 20060501
  Serious: Yes (Hospitalization)
  Sender: FDA-Public Use
  Company Number: FRWYE026004OCT05

PATIENT
  Age: 36 Year
  Sex: Male

DRUGS (5)
  1. TAZOCILLINE (PIPERACILLIN/TAZOBACTAM, INJECTION) [Suspect]
     Indication: INFECTION
     Dosage: 12 G DAILY INTRAVENOUS
     Route: 042
     Dates: start: 20050624, end: 20050627
  2. AMIKACIN [Suspect]
     Indication: INFECTION
     Dosage: 1.2 G DAILY INTRAVENOUS
     Route: 042
     Dates: start: 20050624, end: 20050629
  3. AXEPIM (CEFEPIME HYDROCHLORIDE, , 0) [Suspect]
     Indication: INFECTION
     Dosage: 6 G DAILY INTRAVENOUS
     Route: 042
     Dates: start: 20050627, end: 20050628
  4. FLAGYL [Suspect]
     Indication: INFECTION
     Dosage: 1.5 G DAILY INTRAVENOUS
     Route: 042
     Dates: start: 20050625, end: 20050629
  5. TARGOCID [Suspect]
     Indication: INFECTION
     Dosage: 800 MG DAILY INTRAVENOUS
     Route: 042
     Dates: start: 20050628, end: 20050629

REACTIONS (2)
  - DERMATITIS EXFOLIATIVE [None]
  - LEUKAEMIA RECURRENT [None]
